FAERS Safety Report 9151412 (Version 1)
Quarter: 2013Q1

REPORT INFORMATION
  Report Type: Spontaneous
  Country: US (occurrence: US)
  Receive Date: 20130308
  Receipt Date: 20130308
  Transmission Date: 20140127
  Serious: Yes (Hospitalization)
  Sender: FDA-Public Use
  Company Number: US-ELI_LILLY_AND_COMPANY-US201302009799

PATIENT
  Age: 51 None
  Sex: Female

DRUGS (7)
  1. HUMALOG LISPRO [Suspect]
     Indication: DIABETES MELLITUS
     Dosage: 45 U, TID
  2. HUMALOG LISPRO [Suspect]
     Indication: DIABETES MELLITUS
     Dosage: UNK, UNKNOWN
  3. LANTUS [Concomitant]
     Dosage: 80 DF, BID
  4. METFORMIN [Concomitant]
     Dosage: 2000 MG, QD
  5. METFORMIN [Concomitant]
     Dosage: 500 MG, QD
  6. ZANAFLEX [Concomitant]
     Indication: PAIN
  7. XANAX [Concomitant]

REACTIONS (15)
  - Blood glucose increased [Unknown]
  - Reactive psychosis [Unknown]
  - Blood glucose increased [Not Recovered/Not Resolved]
  - Nervousness [Unknown]
  - Injection site erythema [Unknown]
  - Headache [Unknown]
  - Memory impairment [Unknown]
  - Tremor [Unknown]
  - Head titubation [Unknown]
  - Sleep apnoea syndrome [Unknown]
  - Gout [Unknown]
  - Osteoarthritis [Unknown]
  - Wrong drug administered [Unknown]
  - Wrong technique in drug usage process [Unknown]
  - Flatulence [Unknown]
